FAERS Safety Report 25882379 (Version 1)
Quarter: 2025Q4

REPORT INFORMATION
  Report Type: Spontaneous
  Country: GB (occurrence: GB)
  Receive Date: 20251006
  Receipt Date: 20251006
  Transmission Date: 20260117
  Serious: Yes (Other)
  Sender: ACCORD
  Company Number: None

PATIENT
  Age: 44 Year
  Sex: Female
  Weight: 141 kg

DRUGS (7)
  1. AMITRIPTYLINE [Suspect]
     Active Substance: AMITRIPTYLINE
     Indication: Neuralgia
     Dosage: 10 MY AT NIGHT
     Dates: start: 20250922, end: 20250923
  2. QUETIAPINE [Concomitant]
     Active Substance: QUETIAPINE
  3. LAMOTRIGINE [Concomitant]
     Active Substance: LAMOTRIGINE
  4. OMEPRAZOLE [Concomitant]
     Active Substance: OMEPRAZOLE
  5. CITALOPRAM [Concomitant]
     Active Substance: CITALOPRAM
  6. ROSUVASTATIN [Concomitant]
     Active Substance: ROSUVASTATIN
  7. DESOGESTREL [Concomitant]
     Active Substance: DESOGESTREL

REACTIONS (2)
  - Medication error [Unknown]
  - Obstructive sleep apnoea syndrome [Not Recovered/Not Resolved]

NARRATIVE: CASE EVENT DATE: 20250922
